FAERS Safety Report 12394973 (Version 2)
Quarter: 2016Q4

REPORT INFORMATION
  Report Type: Spontaneous
  Country: US (occurrence: US)
  Receive Date: 20160523
  Receipt Date: 20161122
  Transmission Date: 20170207
  Serious: No
  Sender: FDA-Public Use
  Company Number: US-ALLERGAN-1638239US

PATIENT
  Age: 28 Year
  Sex: Female
  Weight: 185 kg

DRUGS (5)
  1. LIDOCAINE. [Concomitant]
     Active Substance: LIDOCAINE
     Indication: PAIN
  2. PORTIA 21 [Concomitant]
     Indication: CONTRACEPTION
     Dosage: 1 DF, QD
     Route: 048
     Dates: start: 2014
  3. KYBELLA [Suspect]
     Active Substance: DEOXYCHOLIC ACID
     Indication: FAT TISSUE INCREASED
     Dosage: 0.2 ML, SINGLE
     Route: 058
     Dates: start: 20151105, end: 20151105
  4. KYBELLA [Suspect]
     Active Substance: DEOXYCHOLIC ACID
     Dosage: 0.1 ML, SINGLE
     Route: 058
  5. TRAZODONE [Concomitant]
     Active Substance: TRAZODONE HYDROCHLORIDE
     Indication: SLEEP DISORDER
     Dosage: 1 DF, QHS
     Route: 048
     Dates: start: 2015

REACTIONS (5)
  - Injection site swelling [Unknown]
  - Injection site warmth [Unknown]
  - Injection site cellulitis [Not Recovered/Not Resolved]
  - Injection site hypoaesthesia [Unknown]
  - Injection site oedema [Unknown]

NARRATIVE: CASE EVENT DATE: 201602
